FAERS Safety Report 8458751-8 (Version None)
Quarter: 2012Q2

REPORT INFORMATION
  Report Type: 
  Country: None (occurrence: None)
  Receive Date: 20120622
  Receipt Date: 20120619
  Transmission Date: 20120825
  Serious: Yes (Other)
  Sender: FDA-Public Use
  Company Number: US-AMGEN-USASP2011030374

PATIENT
  Age: 29 Year
  Sex: Female

DRUGS (2)
  1. ENBREL [Suspect]
     Indication: PSORIATIC ARTHROPATHY
     Dosage: 50 MG, 2 TIMES/WK
     Dates: start: 20110531
  2. ENBREL [Suspect]
     Indication: PSORIASIS

REACTIONS (4)
  - HYPOAESTHESIA [None]
  - JOINT SWELLING [None]
  - HEADACHE [None]
  - PARAESTHESIA [None]
